FAERS Safety Report 13990467 (Version 5)
Quarter: 2018Q4

REPORT INFORMATION
  Report Type: Report from Study
  Country: US (occurrence: US)
  Receive Date: 20170920
  Receipt Date: 20181106
  Transmission Date: 20190204
  Serious: Yes (Other)
  Sender: FDA-Public Use
  Company Number: US-ROCHE-1991140

PATIENT
  Age: 57 Year
  Sex: Female
  Weight: 64.8 kg

DRUGS (106)
  1. FELODIPINE. [Concomitant]
     Active Substance: FELODIPINE
     Route: 065
     Dates: start: 20180523, end: 20180613
  2. DICLOFENAC [Concomitant]
     Active Substance: DICLOFENAC
  3. AMPICILLIN [Concomitant]
     Active Substance: AMPICILLIN
     Indication: SEPSIS
     Route: 065
     Dates: start: 20180527, end: 20180527
  4. BUSPIRONE [Concomitant]
     Active Substance: BUSPIRONE HYDROCHLORIDE
     Indication: DEPRESSION
     Route: 065
     Dates: start: 20180526, end: 20180613
  5. CALCIUM CARBONATE. [Concomitant]
     Active Substance: CALCIUM CARBONATE
     Route: 065
     Dates: start: 20180525, end: 20180613
  6. GENTAMICIN. [Concomitant]
     Active Substance: GENTAMICIN
     Indication: URINARY TRACT INFECTION
     Route: 065
     Dates: start: 20180610, end: 20180614
  7. NOREPINEPHRINE. [Concomitant]
     Active Substance: NOREPINEPHRINE
     Indication: HYPOTENSION
     Route: 065
     Dates: start: 20180526, end: 20180530
  8. ZOFRAN [Concomitant]
     Active Substance: ONDANSETRON HYDROCHLORIDE
     Indication: INVASIVE DUCTAL BREAST CARCINOMA
     Route: 065
     Dates: start: 20170829
  9. CHANTIX [Concomitant]
     Active Substance: VARENICLINE TARTRATE
     Route: 065
     Dates: start: 20130414, end: 20130417
  10. FELODIPINE. [Concomitant]
     Active Substance: FELODIPINE
     Indication: HYPERTENSION
     Route: 065
     Dates: start: 20100628, end: 201805
  11. ALBUMIN HUMAN [Concomitant]
     Active Substance: ALBUMIN HUMAN
     Route: 065
     Dates: start: 20180530, end: 20180530
  12. AMLOPINE [Concomitant]
     Active Substance: AMLODIPINE BESYLATE
     Indication: HYPERTENSION
     Route: 065
     Dates: start: 20180602, end: 20180602
  13. FENTANYL. [Concomitant]
     Active Substance: FENTANYL
     Route: 065
     Dates: start: 20180528, end: 20180602
  14. METOPROLOL TARTRATE. [Concomitant]
     Active Substance: METOPROLOL TARTRATE
     Indication: HYPERTENSION
     Route: 065
     Dates: start: 20180611, end: 20180614
  15. OMNIPAQUE [Concomitant]
     Active Substance: IOHEXOL
     Route: 065
     Dates: start: 20180531, end: 20180531
  16. SODIUM PHOSPHATE [Concomitant]
     Active Substance: SODIUM PHOSPHATE
     Dosage: 15, 30 (UNIT NOT REPORTED)
     Route: 065
     Dates: start: 20180613, end: 20180613
  17. PROPOFOL. [Concomitant]
     Active Substance: PROPOFOL
     Route: 065
     Dates: start: 20180528, end: 20180528
  18. SODIUM CHLORIDE. [Concomitant]
     Active Substance: SODIUM CHLORIDE
     Route: 065
     Dates: start: 20180530, end: 20180530
  19. BENADRYL [Concomitant]
     Active Substance: DIPHENHYDRAMINE HYDROCHLORIDE
     Indication: DERMATITIS CONTACT
     Dosage: SUBSEQUENT DOSE RECEOVED ON:20/NOV/2012, 03/MAY/2013, 10/APR/2014, 01/OCT/2014, 18/MAR/2015, 13/AUG/
     Route: 065
     Dates: start: 20121107
  20. ACETAMINOPHEN. [Concomitant]
     Active Substance: ACETAMINOPHEN
     Indication: PYREXIA
     Route: 065
     Dates: start: 20180523, end: 20180523
  21. ACETAMINOPHEN. [Concomitant]
     Active Substance: ACETAMINOPHEN
     Route: 065
     Dates: start: 20180526, end: 20180528
  22. ACETAMINOPHEN. [Concomitant]
     Active Substance: ACETAMINOPHEN
     Route: 065
     Dates: start: 20180528, end: 20180529
  23. DEXTROSE. [Concomitant]
     Active Substance: DEXTROSE
     Route: 065
     Dates: start: 20180601, end: 20180601
  24. FLUCONAZOLE. [Concomitant]
     Active Substance: FLUCONAZOLE
     Route: 065
     Dates: start: 20180612, end: 20180612
  25. HYDROCORTISONE SODIUM SUCCINATE [Concomitant]
     Active Substance: HYDROCORTISONE SODIUM SUCCINATE
     Indication: ACUTE RESPIRATORY FAILURE
     Route: 065
     Dates: start: 20180530, end: 20180602
  26. INSULIN ASPART [Concomitant]
     Active Substance: INSULIN ASPART
     Dosage: 2 UNITS
     Route: 065
     Dates: start: 20180601, end: 20180613
  27. MAGNESIUM SULFATE. [Concomitant]
     Active Substance: MAGNESIUM SULFATE
     Route: 065
     Dates: start: 20180530, end: 20180613
  28. MEROPENEM. [Concomitant]
     Active Substance: MEROPENEM
     Indication: PNEUMONIA
     Route: 065
     Dates: start: 20180531, end: 20180609
  29. METOPROLOL. [Concomitant]
     Active Substance: METOPROLOL
     Indication: HYPERTENSION
     Route: 065
     Dates: start: 20180529, end: 20180610
  30. MORPHINE [Concomitant]
     Active Substance: MORPHINE
     Route: 065
     Dates: start: 20180525, end: 20180528
  31. PROPOFOL. [Concomitant]
     Active Substance: PROPOFOL
     Route: 065
     Dates: start: 20180528, end: 20180528
  32. SODIUM CHLORIDE. [Concomitant]
     Active Substance: SODIUM CHLORIDE
     Route: 065
     Dates: start: 20180613, end: 20180613
  33. BENADRYL [Concomitant]
     Active Substance: DIPHENHYDRAMINE HYDROCHLORIDE
     Dosage: SUBSEQUENT DOSE RECEIVED ON :, 25/FEB/2016, 26/JUN/2017
     Route: 065
     Dates: start: 20160211
  34. VIVELLE-DOT [Concomitant]
     Active Substance: ESTRADIOL
     Indication: BACK PAIN
     Route: 065
     Dates: start: 20120227
  35. CHLORHEXIDINE [Concomitant]
     Active Substance: CHLORHEXIDINE
     Route: 065
     Dates: start: 20180530, end: 20180614
  36. DIGOXIN. [Concomitant]
     Active Substance: DIGOXIN
     Indication: ATRIAL FIBRILLATION
     Route: 065
     Dates: start: 20180529, end: 20180529
  37. FENTANYL. [Concomitant]
     Active Substance: FENTANYL
     Indication: PAIN
     Dosage: 100 MG
     Route: 065
     Dates: start: 20140623, end: 20140623
  38. FENTANYL. [Concomitant]
     Active Substance: FENTANYL
     Indication: SEDATIVE THERAPY
     Route: 065
     Dates: start: 20180602, end: 20180606
  39. FUROSEMIDE. [Concomitant]
     Active Substance: FUROSEMIDE
     Route: 065
     Dates: start: 20180527, end: 20180605
  40. MIDAZOLAM [Concomitant]
     Active Substance: MIDAZOLAM HYDROCHLORIDE
     Route: 065
     Dates: start: 20180529, end: 20180529
  41. PHENYLEPHRINE [Concomitant]
     Active Substance: PHENYLEPHRINE\PHENYLEPHRINE HYDROCHLORIDE
     Route: 065
     Dates: start: 20180529, end: 20180531
  42. PROPOFOL. [Concomitant]
     Active Substance: PROPOFOL
     Route: 065
     Dates: start: 20140623, end: 20140623
  43. SODIUM CHLORIDE. [Concomitant]
     Active Substance: SODIUM CHLORIDE
     Indication: INVASIVE DUCTAL BREAST CARCINOMA
     Route: 065
     Dates: start: 20170815
  44. SODIUM CHLORIDE. [Concomitant]
     Active Substance: SODIUM CHLORIDE
     Route: 065
     Dates: start: 20180526, end: 20180527
  45. SODIUM CHLORIDE. [Concomitant]
     Active Substance: SODIUM CHLORIDE
     Dosage: 24/MAY/2018, 29/MAY/2018
     Route: 065
     Dates: start: 20180523
  46. OXYCODONE HYDROCHLORIDE. [Concomitant]
     Active Substance: OXYCODONE HYDROCHLORIDE
     Indication: PAIN
     Route: 065
     Dates: start: 20180602, end: 20180612
  47. BUPROPION. [Concomitant]
     Active Substance: BUPROPION
     Indication: DEPRESSION
     Route: 065
     Dates: start: 200604
  48. CHANTIX [Concomitant]
     Active Substance: VARENICLINE TARTRATE
     Route: 065
     Dates: start: 20130418
  49. NORTRIPTYLINE [Concomitant]
     Active Substance: NORTRIPTYLINE
     Indication: DEPRESSION
     Route: 065
     Dates: start: 20110815
  50. AMLOPINE [Concomitant]
     Active Substance: AMLODIPINE BESYLATE
     Route: 065
     Dates: start: 20180603, end: 20180611
  51. CALCIUM GLUCONATE. [Concomitant]
     Active Substance: CALCIUM GLUCONATE
     Route: 065
     Dates: start: 20180524, end: 20180613
  52. CISATRACURIUM. [Concomitant]
     Active Substance: CISATRACURIUM
     Indication: ENDOTRACHEAL INTUBATION
     Route: 065
     Dates: start: 20180529, end: 20180531
  53. EPINEPHRINE. [Concomitant]
     Active Substance: EPINEPHRINE
     Indication: MENISCUS INJURY
     Route: 065
     Dates: start: 20151214, end: 20151214
  54. FENTANYL. [Concomitant]
     Active Substance: FENTANYL
     Route: 065
     Dates: start: 20180526, end: 20180606
  55. FLUCONAZOLE. [Concomitant]
     Active Substance: FLUCONAZOLE
     Indication: SEPSIS
     Route: 065
     Dates: start: 20180605, end: 20180605
  56. FUROSEMIDE. [Concomitant]
     Active Substance: FUROSEMIDE
     Route: 065
     Dates: start: 20180611, end: 20180611
  57. IBUPROFEN. [Concomitant]
     Active Substance: IBUPROFEN
     Indication: PAIN
     Route: 065
     Dates: start: 20180524, end: 20180525
  58. LUBIPROSTONE [Concomitant]
     Active Substance: LUBIPROSTONE
     Route: 065
     Dates: start: 20180524, end: 20180605
  59. MIDAZOLAM [Concomitant]
     Active Substance: MIDAZOLAM HYDROCHLORIDE
     Route: 065
     Dates: start: 20180528, end: 20180528
  60. MIDAZOLAM [Concomitant]
     Active Substance: MIDAZOLAM HYDROCHLORIDE
     Route: 065
     Dates: start: 20180528, end: 20180528
  61. ZOFRAN [Concomitant]
     Active Substance: ONDANSETRON HYDROCHLORIDE
     Route: 065
     Dates: start: 20170815
  62. ONDANSETRON [Concomitant]
     Active Substance: ONDANSETRON
     Route: 065
     Dates: start: 20180523, end: 20180523
  63. PHENYLEPHRINE [Concomitant]
     Active Substance: PHENYLEPHRINE\PHENYLEPHRINE HYDROCHLORIDE
     Indication: HYPOTENSION
     Route: 065
     Dates: start: 20140623, end: 20140623
  64. PROPOFOL. [Concomitant]
     Active Substance: PROPOFOL
     Indication: WRIST FRACTURE
     Route: 065
     Dates: start: 20130920, end: 20130920
  65. PROPOFOL. [Concomitant]
     Active Substance: PROPOFOL
     Route: 065
     Dates: start: 20180613, end: 20180614
  66. VITAMIN E [Concomitant]
     Active Substance: .ALPHA.-TOCOPHEROL
     Route: 065
     Dates: start: 2007
  67. AMIODARONE [Concomitant]
     Active Substance: AMIODARONE
     Route: 065
     Dates: start: 20180529, end: 20180531
  68. DAPTOMYCIN. [Concomitant]
     Active Substance: DAPTOMYCIN
     Indication: SEPSIS
     Route: 065
     Dates: start: 20180613, end: 20180614
  69. EPINEPHRINE. [Concomitant]
     Active Substance: EPINEPHRINE
     Route: 065
     Dates: start: 20151214, end: 20151214
  70. ENOXAPARIN [Concomitant]
     Active Substance: ENOXAPARIN
     Route: 065
     Dates: start: 20180523, end: 20180613
  71. FAMOTIDINE. [Concomitant]
     Active Substance: FAMOTIDINE
     Route: 065
     Dates: start: 20180529, end: 20180614
  72. FLUCONAZOLE. [Concomitant]
     Active Substance: FLUCONAZOLE
     Route: 065
     Dates: start: 20180606, end: 20180611
  73. GLUCAGON. [Concomitant]
     Active Substance: GLUCAGON
     Route: 065
     Dates: start: 20180601, end: 20180601
  74. HYDROCORTISONE SODIUM SUCCINATE [Concomitant]
     Active Substance: HYDROCORTISONE SODIUM SUCCINATE
     Indication: HYPOXIA
  75. MIDAZOLAM [Concomitant]
     Active Substance: MIDAZOLAM HYDROCHLORIDE
     Indication: MENISCUS INJURY
     Route: 065
     Dates: start: 20151214, end: 20151214
  76. MIDAZOLAM [Concomitant]
     Active Substance: MIDAZOLAM HYDROCHLORIDE
     Indication: SEDATIVE THERAPY
     Route: 065
     Dates: start: 20140623, end: 20140623
  77. ONDANSETRON [Concomitant]
     Active Substance: ONDANSETRON
     Route: 065
     Dates: start: 20140623, end: 20140623
  78. PIPERACILLIN/TAZOBACTAM [Concomitant]
     Active Substance: PIPERACILLIN SODIUM\TAZOBACTAM SODIUM
     Indication: SEPSIS
     Route: 065
     Dates: start: 20180523, end: 20180526
  79. OCRELIZUMAB. [Suspect]
     Active Substance: OCRELIZUMAB
     Indication: PRIMARY PROGRESSIVE MULTIPLE SCLEROSIS
     Dosage: TWO IV INFUSIONS OF OCRELIZUMAB 300 MG SEPARATED BY 14 DAYS FOR CYCLE 1 AND SINGLE IV INFUSION OF OC
     Route: 042
     Dates: start: 20160211
  80. BENADRYL [Concomitant]
     Active Substance: DIPHENHYDRAMINE HYDROCHLORIDE
     Route: 065
     Dates: start: 20150725, end: 20150801
  81. TYLENOL [Concomitant]
     Active Substance: ACETAMINOPHEN
     Dosage: SUBSEQUENT DOSE RECEOVED ON:20/NOV/2012, 03/MAY/2013, 10/APR/2014, 01/OCT/2014, 18/MAR/2015, 13/AUG/
     Route: 065
  82. ACETAMINOPHEN. [Concomitant]
     Active Substance: ACETAMINOPHEN
     Route: 065
     Dates: start: 20180523, end: 20180526
  83. ALBUMIN HUMAN [Concomitant]
     Active Substance: ALBUMIN HUMAN
     Route: 065
     Dates: start: 20180604, end: 20180605
  84. AMIODARONE [Concomitant]
     Active Substance: AMIODARONE
     Indication: ATRIAL FIBRILLATION
     Route: 065
     Dates: start: 20180529, end: 20180529
  85. FAMOTIDINE. [Concomitant]
     Active Substance: FAMOTIDINE
     Indication: MENISCUS INJURY
     Route: 065
     Dates: start: 20151214, end: 20151214
  86. GADOTERIDOL [Concomitant]
     Active Substance: GADOTERIDOL
     Route: 065
     Dates: start: 20180605, end: 20180605
  87. MIDAZOLAM [Concomitant]
     Active Substance: MIDAZOLAM HYDROCHLORIDE
     Route: 065
     Dates: start: 20180526, end: 20180526
  88. ONDANSETRON [Concomitant]
     Active Substance: ONDANSETRON
     Indication: NAUSEA
     Route: 065
     Dates: start: 20140623, end: 20140623
  89. SODIUM CHLORIDE. [Concomitant]
     Active Substance: SODIUM CHLORIDE
     Route: 065
     Dates: start: 20180613, end: 20180613
  90. METHYLPREDNISOLONE. [Concomitant]
     Active Substance: METHYLPREDNISOLONE
     Dosage: SUBSEQUENT DOSE RECEOVED ON:20/NOV/2012, 03/MAY/2013, 10/APR/2014, 01/OCT/2014, 18/MAR/2015, 13/AUG/
     Route: 065
  91. CHANTIX [Concomitant]
     Active Substance: VARENICLINE TARTRATE
     Indication: EX-TOBACCO USER
     Route: 065
     Dates: start: 20130410, end: 20130413
  92. GABAPENTIN. [Concomitant]
     Active Substance: GABAPENTIN
     Indication: PAIN
     Route: 065
     Dates: start: 20061208
  93. ACETAMINOPHEN. [Concomitant]
     Active Substance: ACETAMINOPHEN
     Indication: PAIN IN EXTREMITY
     Route: 065
     Dates: start: 20061208
  94. ACETAMINOPHEN. [Concomitant]
     Active Substance: ACETAMINOPHEN
     Indication: MENISCUS INJURY
     Route: 065
     Dates: start: 20151214, end: 20151214
  95. CEFTAROLINE [Concomitant]
     Active Substance: CEFTAROLINE
     Indication: PNEUMONIA
     Route: 065
     Dates: start: 20180608, end: 20180609
  96. CHLORHEXIDINE [Concomitant]
     Active Substance: CHLORHEXIDINE
     Indication: ENDOTRACHEAL INTUBATION
     Route: 065
     Dates: start: 20180610, end: 20180610
  97. DAPTOMYCIN. [Concomitant]
     Active Substance: DAPTOMYCIN
     Route: 065
     Dates: start: 20180527, end: 20180527
  98. EPINEPHRINE. [Concomitant]
     Active Substance: EPINEPHRINE
     Route: 065
     Dates: start: 20180531, end: 20180613
  99. MICAFUNGIN. [Concomitant]
     Active Substance: MICAFUNGIN SODIUM
     Indication: SEPSIS
     Route: 065
     Dates: start: 20180602, end: 20180604
  100. MODAFINIL. [Concomitant]
     Active Substance: MODAFINIL
     Indication: SEPSIS
     Route: 065
     Dates: start: 20180606, end: 20180610
  101. MORPHINE [Concomitant]
     Active Substance: MORPHINE
     Indication: PAIN
     Route: 065
     Dates: start: 20180523, end: 20180523
  102. NORMODYNE [Concomitant]
     Active Substance: LABETALOL HYDROCHLORIDE
     Indication: HYPERTENSION
     Route: 065
     Dates: start: 20180605, end: 20180605
  103. SODIUM CHLORIDE. [Concomitant]
     Active Substance: SODIUM CHLORIDE
     Route: 065
     Dates: start: 20180526, end: 20180614
  104. OXYCODONE HYDROCHLORIDE. [Concomitant]
     Active Substance: OXYCODONE HYDROCHLORIDE
     Route: 065
     Dates: start: 20180524, end: 20180614
  105. POTASSIUM CHLORIDE. [Concomitant]
     Active Substance: POTASSIUM CHLORIDE
     Route: 065
     Dates: start: 20180525, end: 20180525
  106. PLACEBO [Suspect]
     Active Substance: UNSPECIFIED INGREDIENT
     Indication: PRIMARY PROGRESSIVE MULTIPLE SCLEROSIS
     Dosage: TWO INTRAVENOUS (IV) INFUSIONS SEPARATED BY 14 DAYS IN EACH TREATMENT CYCLE OF 24 WEEKS.?SUBSEQUENT
     Route: 042
     Dates: start: 20121107, end: 20160210

REACTIONS (1)
  - Invasive ductal breast carcinoma [Recovered/Resolved]

NARRATIVE: CASE EVENT DATE: 20170721
